FAERS Safety Report 10549457 (Version 2)
Quarter: 2014Q4

REPORT INFORMATION
  Report Type: Spontaneous
  Country: US (occurrence: US)
  Receive Date: 20141028
  Receipt Date: 20141201
  Transmission Date: 20150529
  Serious: Yes (Hospitalization, Other)
  Sender: FDA-Public Use
  Company Number: US-BAYER-2014-158150

PATIENT
  Age: 22 Year
  Sex: Female
  Weight: 66 kg

DRUGS (1)
  1. MIRENA [Suspect]
     Active Substance: LEVONORGESTREL
     Indication: CONTRACEPTION
     Dosage: 20 MCG/24HR, CONT
     Route: 015
     Dates: start: 20070404, end: 20090729

REACTIONS (17)
  - Pelvic inflammatory disease [None]
  - Emotional distress [None]
  - Device difficult to use [None]
  - Pelvic discomfort [None]
  - Pelvic pain [None]
  - Anxiety [Not Recovered/Not Resolved]
  - Uterine perforation [None]
  - Depression [Not Recovered/Not Resolved]
  - Injury [None]
  - Ovarian cyst [None]
  - Complication of device removal [None]
  - Procedural haemorrhage [None]
  - Mental disorder [Not Recovered/Not Resolved]
  - Device breakage [None]
  - Post procedural discomfort [Not Recovered/Not Resolved]
  - Procedural pain [Not Recovered/Not Resolved]
  - Device issue [None]

NARRATIVE: CASE EVENT DATE: 20070404
